FAERS Safety Report 25582567 (Version 1)
Quarter: 2025Q3

REPORT INFORMATION
  Report Type: Spontaneous
  Country: US (occurrence: US)
  Receive Date: 20250720
  Receipt Date: 20250720
  Transmission Date: 20251021
  Serious: No
  Sender: SANOFI AVENTIS
  Company Number: US-SA-2025SA199205

PATIENT
  Sex: Female

DRUGS (4)
  1. DUPIXENT [Suspect]
     Active Substance: DUPILUMAB
     Indication: Dermatitis atopic
     Dosage: 300 MG, QOW
     Route: 058
     Dates: start: 20230309
  2. TOPIRAMATE [Concomitant]
     Active Substance: TOPIRAMATE
  3. ERGOCALCIFEROL [Concomitant]
     Active Substance: ERGOCALCIFEROL
  4. WEGOVY [Concomitant]
     Active Substance: SEMAGLUTIDE

REACTIONS (4)
  - Discomfort [Unknown]
  - Sleep disorder due to a general medical condition [Unknown]
  - Dermatitis atopic [Unknown]
  - Rash [Unknown]
